FAERS Safety Report 4640118-1 (Version None)
Quarter: 2005Q2

REPORT INFORMATION
  Report Type: 
  Country: None (occurrence: None)
  Receive Date: 20050420
  Receipt Date: 20050308
  Transmission Date: 20051028
  Serious: Yes (Other)
  Sender: FDA-Public Use
  Company Number: NO-ROCHE-397870

PATIENT
  Age: 53 Year
  Sex: Male
  Weight: 53 kg

DRUGS (2)
  1. PEGASYS [Suspect]
     Route: 058
     Dates: start: 20041113
  2. COPEGUS [Concomitant]
     Route: 048
     Dates: start: 20041113

REACTIONS (7)
  - ALANINE AMINOTRANSFERASE INCREASED [None]
  - ASPARTATE AMINOTRANSFERASE INCREASED [None]
  - BILIARY TRACT DISORDER [None]
  - BLOOD ALKALINE PHOSPHATASE INCREASED [None]
  - BLOOD IMMUNOGLOBULIN G INCREASED [None]
  - CHOLANGITIS [None]
  - GAMMA-GLUTAMYLTRANSFERASE INCREASED [None]
